FAERS Safety Report 8890007 (Version 1)
Quarter: 2012Q4

REPORT INFORMATION
  Report Type: 
  Country: FR (occurrence: FR)
  Receive Date: 20121107
  Receipt Date: 20121107
  Transmission Date: 20130627
  Serious: Yes (Hospitalization)
  Sender: FDA-Public Use
  Company Number: FR-ASTRAZENECA-2012SE82861

PATIENT
  Age: 19160 Day
  Sex: Female

DRUGS (11)
  1. CRESTOR [Suspect]
     Indication: DYSLIPIDAEMIA
     Route: 048
  2. AMIODARONE [Interacting]
     Indication: PROPHYLAXIS
     Route: 048
  3. KARDEGIC [Interacting]
     Indication: PROPHYLAXIS
     Route: 048
  4. COUMADINE [Interacting]
     Indication: PROPHYLAXIS
     Route: 048
     Dates: end: 20121003
  5. XARELTO [Interacting]
     Indication: PROPHYLAXIS
     Route: 048
     Dates: start: 20121004, end: 20121005
  6. XARELTO [Interacting]
     Indication: PROPHYLAXIS
     Route: 048
     Dates: start: 20121009
  7. XANAX [Concomitant]
  8. DIFFU-K [Concomitant]
  9. REPAGLINIDE [Concomitant]
  10. FUROSEMIDE [Concomitant]
  11. BISOPROLOL [Concomitant]

REACTIONS (4)
  - Drug interaction [Recovered/Resolved]
  - Epistaxis [Recovered/Resolved]
  - Activated partial thromboplastin time prolonged [Recovered/Resolved]
  - International normalised ratio increased [Recovered/Resolved]
